FAERS Safety Report 9352296 (Version 1)
Quarter: 2013Q2

REPORT INFORMATION
  Report Type: Spontaneous
  Country: US (occurrence: US)
  Receive Date: 20130617
  Receipt Date: 20130617
  Transmission Date: 20140414
  Serious: No
  Sender: FDA-Public Use
  Company Number: US-009507513-1306USA002078

PATIENT
  Age: 57 Year
  Sex: Female

DRUGS (7)
  1. JANUVIA [Suspect]
     Indication: DIABETES MELLITUS
     Dosage: ONE 100 MG JANUVIA TABLET ONCE DAILY IN THE MORNING
     Route: 048
     Dates: start: 20130416, end: 20130604
  2. GABAPENTIN [Suspect]
     Dosage: UNK
     Dates: start: 20130423, end: 2013
  3. COLACE [Concomitant]
  4. ASPIRIN [Concomitant]
  5. LANTUS [Concomitant]
  6. METFORMIN [Concomitant]
  7. METAMUCIL [Concomitant]

REACTIONS (3)
  - Rash pruritic [Not Recovered/Not Resolved]
  - Rash erythematous [Not Recovered/Not Resolved]
  - Urticaria [Not Recovered/Not Resolved]
